FAERS Safety Report 7248943-8 (Version None)
Quarter: 2011Q1

REPORT INFORMATION
  Report Type: 
  Country: None (occurrence: None)
  Receive Date: 20110128
  Receipt Date: 20100901
  Transmission Date: 20110831
  Serious: Yes (Other)
  Sender: FDA-Public Use
  Company Number: US-BAYER-201012348NA

PATIENT
  Sex: Female
  Weight: 72.727 kg

DRUGS (3)
  1. ANTIBIOTICS [Concomitant]
     Dates: start: 20060101, end: 20090101
  2. YAZ [Suspect]
     Indication: PRODUCT USED FOR UNKNOWN INDICATION
     Dosage: 1 DF (DAILY DOSE), QD, ORAL
     Route: 048
     Dates: start: 20060101
  3. YAZ [Suspect]
     Dosage: 1 DF (DAILY DOSE), QD, ORAL
     Route: 048
     Dates: start: 20090101, end: 20090101

REACTIONS (3)
  - PULMONARY EMBOLISM [None]
  - WEIGHT INCREASED [None]
  - NEUROPATHY PERIPHERAL [None]
